FAERS Safety Report 17305568 (Version 1)
Quarter: 2020Q1

REPORT INFORMATION
  Report Type: Spontaneous
  Country: US (occurrence: US)
  Receive Date: 20200106
  Receipt Date: 20200106
  Transmission Date: 20200409
  Serious: No
  Sender: FDA-Public Use
  Company Number: None

PATIENT
  Age: 72 Year
  Sex: Female

DRUGS (1)
  1. CAPECITABINE TAB 150MG [Suspect]
     Active Substance: CAPECITABINE
     Dosage: ?          OTHER DOSE:6TABS AM AND 10TAB;?
     Route: 048
     Dates: start: 201907

REACTIONS (3)
  - Gait disturbance [None]
  - Pain [None]
  - Peripheral swelling [None]

NARRATIVE: CASE EVENT DATE: 20200106
